FAERS Safety Report 23699896 (Version 3)
Quarter: 2024Q2

REPORT INFORMATION
  Report Type: Spontaneous
  Country: US (occurrence: US)
  Receive Date: 20240403
  Receipt Date: 20240429
  Transmission Date: 20240716
  Serious: Yes (Death, Other)
  Sender: FDA-Public Use
  Company Number: US-NOVOPROD-1197357

PATIENT
  Age: 32 Year
  Sex: Male
  Weight: 124.72 kg

DRUGS (4)
  1. SEMAGLUTIDE [Suspect]
     Active Substance: SEMAGLUTIDE
     Dosage: 0.5 MG (20 UNITS- 2.5 MG BOTTLE COMPOUNDED WITH SODIUM)
  2. SEMAGLUTIDE [Suspect]
     Active Substance: SEMAGLUTIDE
     Indication: Weight control
     Dosage: UNK
     Dates: start: 20231027
  3. SODIUM [Suspect]
     Active Substance: SODIUM
     Indication: Product used for unknown indication
     Dosage: UNK
  4. ONDANSETRON [Concomitant]
     Active Substance: ONDANSETRON
     Indication: Product used for unknown indication
     Dosage: 4 MG
     Route: 048

REACTIONS (5)
  - Hypertension [Fatal]
  - Counterfeit product administered [Fatal]
  - Cardiomegaly [Fatal]
  - Palpitations [Fatal]
  - Blood glucose decreased [Unknown]

NARRATIVE: CASE EVENT DATE: 20231027
